FAERS Safety Report 7036909-2 (Version None)
Quarter: 2010Q4

REPORT INFORMATION
  Report Type: 
  Country: None (occurrence: None)
  Receive Date: 20101011
  Receipt Date: 20100929
  Transmission Date: 20110411
  Serious: Yes (Other)
  Sender: FDA-Public Use
  Company Number: US-CELGENEUS-163-20785-10092797

PATIENT
  Sex: Male

DRUGS (2)
  1. THALOMID [Suspect]
     Indication: LYMPHOMA
     Route: 048
     Dates: start: 20100601
  2. THALOMID [Suspect]
     Route: 048
     Dates: start: 20100501

REACTIONS (2)
  - FALL [None]
  - WRIST FRACTURE [None]
